FAERS Safety Report 5764917-8 (Version None)
Quarter: 2008Q2

REPORT INFORMATION
  Report Type: 
  Country: None (occurrence: None)
  Receive Date: 20080611
  Receipt Date: 20080602
  Transmission Date: 20081010
  Serious: Yes (Congenital Anomaly)
  Sender: FDA-Public Use
  Company Number: A0690845A

PATIENT
  Sex: Female
  Weight: 2.3 kg

DRUGS (2)
  1. PAXIL [Suspect]
     Indication: DEPRESSION
     Dates: start: 19990101, end: 20040101
  2. VITAMIN TAB [Concomitant]
     Dates: start: 20040101

REACTIONS (4)
  - DRUG EXPOSURE DURING PREGNANCY [None]
  - FALLOT'S TETRALOGY [None]
  - OXYGEN SATURATION DECREASED [None]
  - PREMATURE BABY [None]
